FAERS Safety Report 11711035 (Version 1)
Quarter: 2015Q4

REPORT INFORMATION
  Report Type: Spontaneous
  Country: US (occurrence: US)
  Receive Date: 20151104
  Receipt Date: 20151104
  Transmission Date: 20160304
  Serious: No
  Sender: FDA-Public Use
  Company Number: US-ELI_LILLY_AND_COMPANY-US201104000152

PATIENT
  Age: 68 Year
  Sex: Female

DRUGS (1)
  1. FORTEO [Suspect]
     Active Substance: TERIPARATIDE
     Indication: OSTEOPOROSIS
     Dosage: 20 UG, QD
     Dates: end: 20110328

REACTIONS (11)
  - Pain [Unknown]
  - Intentional product misuse [Unknown]
  - Dyspnoea [Unknown]
  - Nausea [Unknown]
  - Abdominal discomfort [Unknown]
  - Abdominal pain upper [Unknown]
  - Fear [Unknown]
  - Feeling abnormal [Unknown]
  - Hypotension [Unknown]
  - Dizziness [Unknown]
  - Fear [Unknown]

NARRATIVE: CASE EVENT DATE: 20110318
